FAERS Safety Report 12431669 (Version 6)
Quarter: 2018Q4

REPORT INFORMATION
  Report Type: Report from Study
  Country: US (occurrence: US)
  Receive Date: 20160603
  Receipt Date: 20181031
  Transmission Date: 20190204
  Serious: Yes (Congenital Anomaly, Other)
  Sender: FDA-Public Use
  Company Number: US-ROCHE-1725655

PATIENT
  Age: 8 Month
  Sex: Male
  Weight: 10.8 kg

DRUGS (1)
  1. MYCOPHENOLATE MOFETIL. [Suspect]
     Active Substance: MYCOPHENOLATE MOFETIL
     Indication: PRODUCT USED FOR UNKNOWN INDICATION
     Route: 064

REACTIONS (5)
  - Foetal exposure during pregnancy [Unknown]
  - Dermatitis atopic [Unknown]
  - Premature baby [Unknown]
  - Foetal growth restriction [Unknown]
  - Patent ductus arteriosus [Unknown]

NARRATIVE: CASE EVENT DATE: 201611
